FAERS Safety Report 8106417-6 (Version None)
Quarter: 2012Q1

REPORT INFORMATION
  Report Type: 
  Country: None (occurrence: None)
  Receive Date: 20120202
  Receipt Date: 20120124
  Transmission Date: 20120608
  Serious: Yes (Hospitalization)
  Sender: FDA-Public Use
  Company Number: FR-JNJFOC-20120112136

PATIENT
  Sex: Male

DRUGS (7)
  1. TRAMADOL HCL [Concomitant]
  2. PANTOPRAZOLE [Concomitant]
  3. TERBUTALINE [Concomitant]
  4. ACETAMINOPHEN [Concomitant]
  5. XARELTO [Suspect]
     Indication: HIP ARTHROPLASTY
     Route: 048
     Dates: start: 20111001, end: 20111010
  6. IPRATROPIUM BROMIDE [Concomitant]
  7. SPIRONOLACTONE [Concomitant]

REACTIONS (1)
  - PROTHROMBIN TIME PROLONGED [None]
